FAERS Safety Report 14016774 (Version 5)
Quarter: 2018Q4

REPORT INFORMATION
  Report Type: Spontaneous
  Country: US (occurrence: US)
  Receive Date: 20170927
  Receipt Date: 20181205
  Transmission Date: 20190204
  Serious: Yes (Other)
  Sender: FDA-Public Use
  Company Number: US-JNJFOC-20170925686

PATIENT
  Age: 48 Year
  Sex: Female
  Weight: 52.16 kg

DRUGS (2)
  1. STELARA [Suspect]
     Active Substance: USTEKINUMAB
     Indication: CROHN^S DISEASE
     Route: 058
     Dates: start: 20170525
  2. QUESTRAN [Concomitant]
     Active Substance: CHOLESTYRAMINE
     Indication: CHOLECYSTECTOMY
     Route: 065
     Dates: start: 201607

REACTIONS (4)
  - Product packaging quantity issue [Unknown]
  - Product dose omission [Unknown]
  - Syringe issue [Unknown]
  - Disability [Not Recovered/Not Resolved]

NARRATIVE: CASE EVENT DATE: 20170925
